FAERS Safety Report 9348070 (Version 1)
Quarter: 2013Q2

REPORT INFORMATION
  Report Type: Report from Study
  Country: US (occurrence: US)
  Receive Date: 20130614
  Receipt Date: 20130614
  Transmission Date: 20140414
  Serious: Yes (Other)
  Sender: FDA-Public Use
  Company Number: US-BAYER-2013-072573

PATIENT
  Age: 10 Year
  Sex: 0

DRUGS (1)
  1. SORAFENIB (RAF KINASE INHIBITOR) [Suspect]
     Indication: ASTROCYTOMA, LOW GRADE
     Dosage: 200 MG/M2, BID
     Route: 048
     Dates: end: 20120218

REACTIONS (6)
  - Astrocytoma, low grade [None]
  - Rash [Recovered/Resolved]
  - Constipation [Recovered/Resolved]
  - Fatigue [Not Recovered/Not Resolved]
  - Toothache [Recovered/Resolved]
  - Pyrexia [Recovered/Resolved]
